FAERS Safety Report 14450766 (Version 1)
Quarter: 2018Q1

REPORT INFORMATION
  Report Type: Spontaneous
  Country: US (occurrence: US)
  Receive Date: 20180126
  Receipt Date: 20180126
  Transmission Date: 20180509
  Serious: Yes (Disabling)
  Sender: FDA-Public Use
  Company Number: None

PATIENT
  Age: 31 Year
  Sex: Female
  Weight: 70.65 kg

DRUGS (1)
  1. SULFAMETH/TMP 800/160 MG TB [Suspect]
     Active Substance: SULFAMETHOXAZOLE\TRIMETHOPRIM
     Indication: URINARY TRACT INFECTION
     Dosage: ?          QUANTITY:1 TABLET(S);?
     Route: 048
     Dates: start: 20180124

REACTIONS (8)
  - Lip pain [None]
  - Lip swelling [None]
  - Lip blister [None]
  - Lip pruritus [None]
  - Vulvovaginal pain [None]
  - Vulvovaginal swelling [None]
  - Secretion discharge [None]
  - Vulvovaginal pruritus [None]

NARRATIVE: CASE EVENT DATE: 20180124
